FAERS Safety Report 20961091 (Version 1)
Quarter: 2022Q2

REPORT INFORMATION
  Report Type: Spontaneous
  Country: US (occurrence: US)
  Receive Date: 20220615
  Receipt Date: 20220615
  Transmission Date: 20220721
  Serious: No
  Sender: FDA-Public Use
  Company Number: US-ELI_LILLY_AND_COMPANY-US202206005809

PATIENT
  Sex: Female

DRUGS (1)
  1. HUMULIN N [Suspect]
     Active Substance: INSULIN HUMAN
     Indication: Type 2 diabetes mellitus
     Dosage: 11 U, UNKNOWN
     Route: 058
     Dates: start: 2020

REACTIONS (3)
  - Blood glucose decreased [Unknown]
  - Incorrect product administration duration [Unknown]
  - Product prescribing error [Unknown]
